FAERS Safety Report 8497399 (Version 2)
Quarter: 2013Q1

REPORT INFORMATION
  Report Type: Spontaneous
  Country: CA (occurrence: CA)
  Receive Date: 20120406
  Receipt Date: 20130328
  Transmission Date: 20140127
  Serious: Yes (Death, Hospitalization)
  Sender: FDA-Public Use
  Company Number: CA-JNJFOC-20120400361

PATIENT
  Age: 76 None
  Sex: Female
  Weight: 60 kg

DRUGS (9)
  1. REMICADE [Suspect]
     Indication: RHEUMATOID ARTHRITIS
     Route: 042
     Dates: start: 20000612, end: 201112
  2. CALCIUM AND VIT D [Concomitant]
     Route: 065
  3. LASIX [Concomitant]
     Route: 065
  4. NORVASC [Concomitant]
     Route: 065
  5. GLUCOPHAGE [Concomitant]
     Route: 065
  6. ALTACE [Concomitant]
     Route: 065
  7. SYNTHROID [Concomitant]
     Route: 065
  8. FOSAMAX [Concomitant]
     Route: 065
  9. LIPITOR [Concomitant]
     Route: 065

REACTIONS (6)
  - Death [Fatal]
  - Pleurisy [Unknown]
  - Fatigue [Unknown]
  - Wound [Unknown]
  - Oedema peripheral [Unknown]
  - Dyspnoea [Unknown]
